FAERS Safety Report 4882504-0 (Version None)
Quarter: 2005Q4

REPORT INFORMATION
  Report Type: 
  Country: None (occurrence: None)
  Receive Date: 20051201
  Receipt Date: 20050924
  Transmission Date: 20060501
  Serious: No
  Sender: FDA-Public Use
  Company Number: 2005PV002762

PATIENT
  Age: 59 Year
  Sex: Male
  Weight: 111.5849 kg

DRUGS (6)
  1. BYETTA [Suspect]
     Indication: DIABETES MELLITUS NON-INSULIN-DEPENDENT
     Dosage: SEE IMAGE
     Route: 058
     Dates: start: 20050101, end: 20050101
  2. BYETTA [Suspect]
     Indication: DIABETES MELLITUS NON-INSULIN-DEPENDENT
     Dosage: SEE IMAGE
     Route: 058
     Dates: start: 20050101
  3. GLUCOPHAGE [Concomitant]
  4. AVANDIA [Concomitant]
  5. LANTUS [Concomitant]
  6. ZANTAC [Concomitant]

REACTIONS (6)
  - ABDOMINAL DISTENSION [None]
  - DIARRHOEA [None]
  - DYSPEPSIA [None]
  - EARLY SATIETY [None]
  - FLATULENCE [None]
  - NAUSEA [None]
